FAERS Safety Report 9556019 (Version 1)
Quarter: 2013Q3

REPORT INFORMATION
  Report Type: Spontaneous
  Country: US (occurrence: None)
  Receive Date: 20130726
  Receipt Date: 20130726
  Transmission Date: 20140515
  Serious: Yes (Hospitalization)
  Sender: FDA-Public Use
  Company Number: UTC-023205

PATIENT
  Age: 40 Year
  Sex: Female
  Weight: 81.81 kg

DRUGS (5)
  1. REMODULIN (1 MILLIGRAM/MILLILITERS, INJECTION FOR INFUSION) (TREPROSTINIL SODIUM) [Suspect]
     Indication: PULMONARY ARTERIAL HYPERTENSION
     Dosage: 12.96 UG/KG (0.009 UG/KG, 1 IN 1 MIN), INTRAVENOUS
     Route: 042
     Dates: start: 20120716
  2. REMODULIN (1 MILLIGRAM/MILLILITERS, INJECTION FOR INFUSION) (TREPROSTINIL SODIUM) [Suspect]
     Dosage: 12.96 UG/KG (0.009 UG/KG, 1 IN 1 MIN), INTRAVENOUS
     Route: 042
     Dates: start: 20120716
  3. LETAIRIS (AMBRISENTAN) (TABLETS) [Concomitant]
  4. ADCIRCA (TADALAFIL) [Concomitant]
  5. TYVASO (AEROSOL FOR INHALATION) [Concomitant]

REACTIONS (6)
  - Injection site cellulitis [None]
  - Device leakage [None]
  - Pulmonary hypertension [None]
  - Injection site pruritus [None]
  - Skin sensitisation [None]
  - Injection site erythema [None]
